FAERS Safety Report 5390761-X (Version None)
Quarter: 2007Q3

REPORT INFORMATION
  Report Type: 
  Country: None (occurrence: None)
  Receive Date: 20070716
  Receipt Date: 20050420
  Transmission Date: 20080115
  Serious: Yes (Death)
  Sender: FDA-Public Use
  Company Number: MPS1-10359

PATIENT
  Age: 4 Year
  Sex: Female
  Weight: 14.2 kg

DRUGS (7)
  1. ALDURAZYME [Suspect]
     Indication: MUCOPOLYSACCHARIDOSIS I
     Dosage: 1.2 MG/KG QWK IV
     Route: 042
     Dates: start: 20050413, end: 20050413
  2. DIFENIDIRAMINE [Concomitant]
  3. ACETAMINOPHEN [Concomitant]
  4. AMOXICILLIN [Concomitant]
  5. PHENOTEROL [Concomitant]
  6. AMBROSAL [Concomitant]
  7. DIPIRONE [Concomitant]

REACTIONS (1)
  - RESPIRATORY FAILURE [None]
